FAERS Safety Report 8274042-2 (Version None)
Quarter: 2012Q2

REPORT INFORMATION
  Report Type: 
  Country: None (occurrence: None)
  Receive Date: 20120406
  Receipt Date: 20120406
  Transmission Date: 20120825
  Serious: Yes (Hospitalization)
  Sender: FDA-Public Use
  Company Number: None

PATIENT
  Age: 59 Year
  Sex: Male
  Weight: 77.4 kg

DRUGS (1)
  1. NAFCILLIN [Suspect]
     Indication: STAPHYLOCOCCAL SEPSIS
     Dosage: 2G Q 4 H IV
     Route: 042
     Dates: start: 20120227, end: 20120301

REACTIONS (1)
  - RASH [None]
